FAERS Safety Report 19474306 (Version 1)
Quarter: 2021Q2

REPORT INFORMATION
  Report Type: Spontaneous
  Country: US (occurrence: US)
  Receive Date: 20210629
  Receipt Date: 20210629
  Transmission Date: 20210717
  Serious: No
  Sender: FDA-Public Use
  Company Number: US-BAYER-2021-163459

PATIENT
  Sex: Female
  Weight: 77.3 kg

DRUGS (3)
  1. XARELTO [Concomitant]
     Active Substance: RIVAROXABAN
     Indication: PRODUCT USED FOR UNKNOWN INDICATION
  2. ADEMPAS [Suspect]
     Active Substance: RIOCIGUAT
     Indication: PRODUCT USED FOR UNKNOWN INDICATION
  3. MACITENTAN [Suspect]
     Active Substance: MACITENTAN
     Indication: PULMONARY ARTERIAL HYPERTENSION
     Dosage: 10 MG

REACTIONS (11)
  - Weight increased [None]
  - Discomfort [None]
  - Oedema [None]
  - Nasal congestion [None]
  - Peripheral swelling [None]
  - Adverse drug reaction [None]
  - Blood pressure decreased [None]
  - Fluid retention [None]
  - Dyspnoea [None]
  - Dizziness [None]
  - Fall [None]
